FAERS Safety Report 19786858 (Version 7)
Quarter: 2022Q1

REPORT INFORMATION
  Report Type: Report from Study
  Country: US (occurrence: US)
  Receive Date: 20210903
  Receipt Date: 20220221
  Transmission Date: 20220423
  Serious: No
  Sender: FDA-Public Use
  Company Number: NVSC2021US199853

PATIENT
  Age: 57 Year
  Sex: Male

DRUGS (4)
  1. COSENTYX [Suspect]
     Active Substance: SECUKINUMAB
     Indication: Psoriasis
     Dosage: 300 MG, QW (Q WEEK FOR FIVE WEEKS ADN THEN Q FOUR)
     Route: 058
     Dates: start: 20210811
  2. COSENTYX [Suspect]
     Active Substance: SECUKINUMAB
     Dosage: 300 MG
     Route: 058
     Dates: start: 202108
  3. COSENTYX [Suspect]
     Active Substance: SECUKINUMAB
     Dosage: UNK
     Route: 065
     Dates: start: 20220124
  4. COSENTYX [Suspect]
     Active Substance: SECUKINUMAB
     Dosage: UNK
     Route: 065
     Dates: start: 20220221

REACTIONS (12)
  - Psoriasis [Unknown]
  - Pruritus [Unknown]
  - Erythema [Unknown]
  - Therapeutic product effect incomplete [Unknown]
  - Fall [Unknown]
  - Back injury [Unknown]
  - COVID-19 [Unknown]
  - Pain [Unknown]
  - Nasal congestion [Unknown]
  - Cough [Unknown]
  - Ageusia [Unknown]
  - Anosmia [Unknown]

NARRATIVE: CASE EVENT DATE: 20210901
